FAERS Safety Report 6533548-4 (Version None)
Quarter: 2010Q1

REPORT INFORMATION
  Report Type: 
  Country: None (occurrence: None)
  Receive Date: 20100108
  Receipt Date: 20100108
  Transmission Date: 20100710
  Serious: Yes (Other)
  Sender: FDA-Public Use
  Company Number: None

PATIENT
  Age: 30 Year
  Sex: Female
  Weight: 58.514 kg

DRUGS (2)
  1. MIRENA [Suspect]
     Indication: CONTRACEPTION
  2. MIRENA [Suspect]
     Indication: INTRA-UTERINE CONTRACEPTIVE DEVICE

REACTIONS (4)
  - ANGER [None]
  - DYSPNOEA [None]
  - IMPAIRED WORK ABILITY [None]
  - MUSCLE SPASMS [None]
